FAERS Safety Report 9320176 (Version 2)
Quarter: 2013Q3

REPORT INFORMATION
  Report Type: Spontaneous
  Country: US (occurrence: US)
  Receive Date: 20130530
  Receipt Date: 20130717
  Transmission Date: 20140515
  Serious: No
  Sender: FDA-Public Use
  Company Number: US-ASTRAZENECA-2013SE35437

PATIENT
  Age: 73 Year
  Sex: Female

DRUGS (1)
  1. SYMBICORT [Suspect]
     Dosage: 80/4.5 MCG, TWO PUFFS, BID
     Route: 055
     Dates: start: 201206

REACTIONS (1)
  - Chest discomfort [Unknown]
